FAERS Safety Report 5891075-1 (Version None)
Quarter: 2008Q3

REPORT INFORMATION
  Report Type: 
  Country: None (occurrence: None)
  Receive Date: 20080922
  Receipt Date: 20080912
  Transmission Date: 20090109
  Serious: Yes (Hospitalization)
  Sender: FDA-Public Use
  Company Number: JP-ABBOTT-08P-087-0473143-00

PATIENT
  Age: 77 Year
  Sex: Male

DRUGS (11)
  1. LEUPROLIDE ACETATE [Suspect]
     Indication: PROSTATE CANCER STAGE IV
     Route: 058
     Dates: start: 20060517
  2. LEUPROLIDE ACETATE [Suspect]
  3. LEUPROLIDE ACETATE [Suspect]
     Indication: PROSTATE CANCER STAGE IV
     Dates: start: 20060322, end: 20060419
  4. BICALUTAMIDE [Concomitant]
     Indication: PROSTATE CANCER STAGE IV
     Route: 048
     Dates: end: 20070821
  5. ENALAPRIL MALEATE [Concomitant]
     Indication: HYPERTENSION
     Route: 048
  6. FUROSEMIDE [Concomitant]
     Indication: CARDIAC FAILURE
     Route: 048
  7. DIGOXIN [Concomitant]
     Indication: CARDIAC FAILURE
     Route: 048
  8. ISOSORBIDE MONONITRATE [Concomitant]
     Indication: ANGINA PECTORIS
     Route: 048
  9. POLAPREZINC [Concomitant]
     Indication: GASTRIC ULCER
     Route: 048
  10. FAMOTIDINE [Concomitant]
     Indication: GASTRIC ULCER
     Route: 048
  11. ESTRAMUSTINE PHOSPHATE SODIUM [Concomitant]
     Indication: PROSTATE CANCER STAGE IV
     Route: 048
     Dates: start: 20071031, end: 20080318

REACTIONS (3)
  - ANAEMIA [None]
  - INGUINAL HERNIA [None]
  - TRIGGER FINGER [None]
